FAERS Safety Report 8455315-7 (Version None)
Quarter: 2012Q2

REPORT INFORMATION
  Report Type: 
  Country: None (occurrence: None)
  Receive Date: 20120621
  Receipt Date: 20120619
  Transmission Date: 20120825
  Serious: Yes (Other)
  Sender: FDA-Public Use
  Company Number: AU-PFIZER INC-2012146697

PATIENT
  Age: 48 Year
  Sex: Female

DRUGS (2)
  1. EFFEXOR XR [Concomitant]
     Dosage: UNK
  2. XANAX [Suspect]
     Indication: ANXIETY
     Dosage: UNK

REACTIONS (8)
  - ECONOMIC PROBLEM [None]
  - PERSONALITY DISORDER [None]
  - MOOD ALTERED [None]
  - EUPHORIC MOOD [None]
  - MANIA [None]
  - JUDGEMENT IMPAIRED [None]
  - BIPOLAR I DISORDER [None]
  - COMPULSIVE SHOPPING [None]
